FAERS Safety Report 7264973-4 (Version None)
Quarter: 2011Q1

REPORT INFORMATION
  Report Type: 
  Country: None (occurrence: None)
  Receive Date: 20110131
  Receipt Date: 20101207
  Transmission Date: 20110831
  Serious: Yes (Other)
  Sender: FDA-Public Use
  Company Number: US-BAYER-201037706NA

PATIENT
  Sex: Female
  Weight: 97.506 kg

DRUGS (7)
  1. YASMIN [Suspect]
     Indication: ACNE
     Dosage: UNK
     Dates: start: 20040101, end: 20070101
  2. YAZ [Suspect]
     Indication: ACNE
  3. UNCODEABLE ^UNCLASSIFIABLE^ [Concomitant]
  4. OXYCONTIN [Concomitant]
  5. OCELLA [Suspect]
     Indication: ACNE
  6. ANTIBIOTICS [Concomitant]
     Indication: KIDNEY INFECTION
  7. DILAUDID [Concomitant]

REACTIONS (7)
  - CHOLECYSTITIS CHRONIC [None]
  - BACK PAIN [None]
  - NAUSEA [None]
  - ABDOMINAL DISTENSION [None]
  - ABDOMINAL PAIN [None]
  - ABDOMINAL PAIN UPPER [None]
  - CHOLELITHIASIS [None]
